FAERS Safety Report 22067712 (Version 1)
Quarter: 2023Q1

REPORT INFORMATION
  Report Type: Spontaneous
  Country: US (occurrence: US)
  Receive Date: 20230307
  Receipt Date: 20230307
  Transmission Date: 20230418
  Serious: Yes (Other)
  Sender: FDA-Public Use
  Company Number: US-CATALYST PHARMACEUTICALS, INC-US-CATA-23-00106

PATIENT
  Age: 63 Year
  Sex: Female

DRUGS (2)
  1. FIRDAPSE [Suspect]
     Active Substance: AMIFAMPRIDINE PHOSPHATE
     Indication: Myasthenic syndrome
     Dosage: UNKNOWN ^TITRATED TO 60 MG^
     Route: 048
     Dates: start: 20221107
  2. FIRDAPSE [Suspect]
     Active Substance: AMIFAMPRIDINE PHOSPHATE
     Dosage: 60 MG A DAY
     Route: 048

REACTIONS (1)
  - Small cell carcinoma [Not Recovered/Not Resolved]

NARRATIVE: CASE EVENT DATE: 20230201
